FAERS Safety Report 4987407-9 (Version None)
Quarter: 2006Q2

REPORT INFORMATION
  Report Type: 
  Country: None (occurrence: None)
  Receive Date: 20060424
  Receipt Date: 20060418
  Transmission Date: 20061013
  Serious: Yes (Other)
  Sender: FDA-Public Use
  Company Number: US-2005-023782

PATIENT
  Age: 51 Year
  Sex: Female
  Weight: 55.8 kg

DRUGS (11)
  1. CLIMARA [Suspect]
     Indication: MENOPAUSE
     Dosage: 0.05 MG/D, CONT, TRANSDERMAL
     Route: 062
     Dates: start: 19970512
  2. PREMARIN [Suspect]
     Indication: MENOPAUSE
     Dosage: 0.625 MG, 1X/DAY
     Dates: start: 19950628, end: 19970101
  3. PROVERA [Suspect]
     Indication: MENOPAUSE
     Dosage: 10 MG
     Dates: start: 19950628, end: 19970101
  4. PREMPRO [Suspect]
     Indication: MENOPAUSE
     Dosage: 2.5 MG, 1X/DAY
     Dates: start: 19971222, end: 20020728
  5. MEDROXYPROGESTERONE [Suspect]
     Indication: MENOPAUSE
     Dosage: 10 MG
     Dates: start: 19970512
  6. PREMARIN [Suspect]
     Indication: MENOPAUSE
     Dosage: 0.625 MG/G
     Dates: start: 20001017, end: 20020101
  7. ESTRACE [Suspect]
     Indication: MENOPAUSE
     Dates: start: 20020712, end: 20040101
  8. VAGIFEM [Suspect]
     Indication: MENOPAUSE
     Dosage: 25 MCG
     Dates: start: 20021125
  9. ESTRING [Suspect]
     Indication: MENOPAUSE
     Dosage: 2 MG
     Dates: start: 20030812
  10. XANAX [Concomitant]
  11. PAXIL [Concomitant]

REACTIONS (19)
  - ATROPHIC VULVOVAGINITIS [None]
  - BLOOD CHOLESTEROL INCREASED [None]
  - BREAST CANCER FEMALE [None]
  - CERVICAL STRICTURE [None]
  - ECZEMA [None]
  - FIBROCYSTIC BREAST DISEASE [None]
  - GASTRITIS [None]
  - GASTROOESOPHAGEAL REFLUX DISEASE [None]
  - HERPES ZOSTER [None]
  - NERVOUSNESS [None]
  - OSTEOPENIA [None]
  - OSTEOPOROSIS [None]
  - PAIN [None]
  - PARAESTHESIA [None]
  - RASH [None]
  - SKIN EXFOLIATION [None]
  - URTICARIA [None]
  - UTERINE POLYP [None]
  - WEIGHT DECREASED [None]
